FAERS Safety Report 9803589 (Version 1)
Quarter: 2014Q1

REPORT INFORMATION
  Report Type: Spontaneous
  Country: US (occurrence: US)
  Receive Date: 20140108
  Receipt Date: 20140108
  Transmission Date: 20141002
  Serious: Yes (Death, Other)
  Sender: FDA-Public Use
  Company Number: US-UCBSA-108258

PATIENT
  Age: 43 Year
  Sex: Male

DRUGS (4)
  1. ACETAMINOPHEN/HYDROCODONE [Suspect]
  2. ALPRAZOLAM [Suspect]
  3. AMITRIPTYLINE [Suspect]
  4. ETHANOL [Suspect]

REACTIONS (1)
  - Drug abuse [Fatal]
